FAERS Safety Report 12345993 (Version 2)
Quarter: 2023Q2

REPORT INFORMATION
  Report Type: Spontaneous
  Country: GB (occurrence: GB)
  Receive Date: 20160509
  Receipt Date: 20230626
  Transmission Date: 20230721
  Serious: Yes (Life-Threatening, Hospitalization, Other)
  Sender: FDA-Public Use
  Company Number: PHFR2016GB003745

PATIENT
  Age: 56 Year
  Sex: Female

DRUGS (9)
  1. ONDANSETRON [Suspect]
     Active Substance: ONDANSETRON
     Indication: Prophylaxis of nausea and vomiting
     Dosage: UNK
     Route: 065
     Dates: start: 2016
  2. CLOZAPINE [Suspect]
     Active Substance: CLOZAPINE
     Indication: Schizophrenia
     Dosage: 300 MG, QD (NOCTE)
     Route: 050
     Dates: start: 20040927
  3. CYCLOPHOSPHAMIDE [Concomitant]
     Active Substance: CYCLOPHOSPHAMIDE
     Indication: Chemotherapy
     Dosage: UNK
     Route: 065
     Dates: start: 2016, end: 20160512
  4. EPIRUBICIN [Concomitant]
     Active Substance: EPIRUBICIN
     Indication: Chemotherapy
     Dosage: UNK
     Route: 065
     Dates: start: 2016, end: 20160512
  5. DEXAMETHASONE [Concomitant]
     Active Substance: DEXAMETHASONE
     Indication: Chemotherapy
     Dosage: 16 MG, BID
     Route: 042
     Dates: end: 20160512
  6. DEXAMETHASONE [Concomitant]
     Active Substance: DEXAMETHASONE
     Dosage: 4 MG, BID
     Route: 048
     Dates: end: 20160512
  7. FLUOROURACIL [Concomitant]
     Active Substance: FLUOROURACIL
     Indication: Chemotherapy
     Dosage: UNK
     Route: 065
     Dates: start: 2016, end: 20160512
  8. GRANULOCYTE COLONY-STIMULATING FACTOR NOS [Concomitant]
     Active Substance: GRANULOCYTE COLONY-STIMULATING FACTOR NOS
     Indication: Product used for unknown indication
     Dosage: 10 MG, TID
     Route: 065
     Dates: start: 2016
  9. TAXOTERE [Concomitant]
     Active Substance: DOCETAXEL
     Indication: Chemotherapy
     Dosage: UNK
     Route: 065
     Dates: start: 2016, end: 20160512

REACTIONS (10)
  - Breast cancer [Not Recovered/Not Resolved]
  - Leukopenia [Recovered/Resolved]
  - Contraindicated product administered [Recovered/Resolved]
  - Nausea [Not Recovered/Not Resolved]
  - Neutrophil count decreased [Recovered/Resolved]
  - Neutrophil count increased [Recovered/Resolved]
  - White blood cell count increased [Recovered/Resolved]
  - Platelet count increased [Recovered/Resolved]
  - Colon cancer [Not Recovered/Not Resolved]
  - Intestinal perforation [Not Recovered/Not Resolved]

NARRATIVE: CASE EVENT DATE: 20160101
